FAERS Safety Report 9903604 (Version 2)
Quarter: 2014Q1

REPORT INFORMATION
  Report Type: Report from Study
  Country: US (occurrence: US)
  Receive Date: 20140217
  Receipt Date: 20140217
  Transmission Date: 20141002
  Serious: Yes (Hospitalization, Other)
  Sender: FDA-Public Use
  Company Number: US-TAKEDA-2014TUS000924

PATIENT
  Age: 80 Year
  Sex: Female
  Weight: 83 kg

DRUGS (16)
  1. BLINDED ALLOPURINOL [Suspect]
     Indication: HYPERURICAEMIA
     Dosage: UNK, QD
     Route: 048
     Dates: start: 20100524, end: 20100611
  2. BLINDED FEBUXOSTAT [Suspect]
     Indication: HYPERURICAEMIA
     Dosage: UNK, QD
     Route: 048
     Dates: start: 20100524, end: 20100611
  3. TRAZADONE [Concomitant]
     Indication: GOUT
     Dosage: 100 MG, QD
     Route: 048
     Dates: start: 1995
  4. LEVOXYL [Concomitant]
     Indication: HYPOTHYROIDISM
     Dosage: 150 ?G, QD
     Route: 048
     Dates: start: 1980
  5. ZOLOFT [Concomitant]
     Indication: DEPRESSION
     Dosage: 100 MG, BID
     Route: 048
     Dates: start: 1995
  6. IMDUR [Concomitant]
     Indication: ANGINA PECTORIS
     Dosage: 120 MG, BID
     Route: 048
     Dates: start: 1982
  7. PEPCID                             /00706001/ [Concomitant]
     Indication: DYSPEPSIA
     Dosage: 20 MG, QD
     Route: 048
     Dates: start: 2009
  8. MULTIVITAMIN [Concomitant]
     Indication: ROUTINE HEALTH MAINTENANCE
     Dosage: 1 DF, QD
     Route: 048
     Dates: start: 1980
  9. VICODEN [Concomitant]
     Indication: SPINAL COLUMN STENOSIS
     Dosage: 7.5 MG, TID
     Route: 048
     Dates: start: 2007
  10. NEURONTIN [Concomitant]
     Indication: ARTHRITIS
     Dosage: 300 MG, BID
     Route: 048
     Dates: start: 2009
  11. NEURONTIN [Concomitant]
     Indication: ARTHRITIS
  12. PLAVIX [Concomitant]
     Indication: CORONARY REVASCULARISATION
     Dosage: 75 MG, QD
     Route: 048
     Dates: start: 1982
  13. ECOTRIN [Concomitant]
     Indication: ROUTINE HEALTH MAINTENANCE
     Dosage: 81 MG, QD
     Route: 048
     Dates: start: 1982
  14. POTASSIUM CHLORIDE [Concomitant]
     Indication: ROUTINE HEALTH MAINTENANCE
     Dosage: 10 MEQ, BID
     Route: 048
     Dates: start: 1982
  15. LASIX                              /00032601/ [Concomitant]
     Indication: HYPERTENSION
     Dosage: 40 MG, QD
     Route: 048
     Dates: start: 1982
  16. PRAVACHOL [Concomitant]
     Indication: CORONARY REVASCULARISATION
     Dosage: 20 MG, QD
     Route: 048
     Dates: start: 1982

REACTIONS (3)
  - Pneumonia [Recovering/Resolving]
  - Acute respiratory failure [Recovering/Resolving]
  - Renal failure acute [Recovering/Resolving]
